FAERS Safety Report 4346094-3 (Version None)
Quarter: 2004Q1

REPORT INFORMATION
  Report Type: 
  Country: None (occurrence: None)
  Receive Date: 20040325
  Receipt Date: 20040217
  Transmission Date: 20041129
  Serious: No
  Sender: FDA-Public Use
  Company Number: USA030435823

PATIENT
  Age: 56 Year
  Sex: Female

DRUGS (6)
  1. FORTEO [Suspect]
     Indication: OSTEOPOROSIS
     Dosage: 20 UG/DAY
     Dates: start: 20030425
  2. DEMEROL [Concomitant]
  3. TYLENOL [Concomitant]
  4. PREMARIN [Concomitant]
  5. ZYRTEC [Concomitant]
  6. MULTIVITAMIN AND MINERAL SUPPLEMENT [Concomitant]

REACTIONS (13)
  - ABNORMAL SENSATION IN EYE [None]
  - ALOPECIA [None]
  - CONTUSION [None]
  - EYE REDNESS [None]
  - FALL [None]
  - FATIGUE [None]
  - HEADACHE [None]
  - HEART RATE INCREASED [None]
  - HYPOTRICHOSIS [None]
  - INJECTION SITE PAIN [None]
  - NASOPHARYNGITIS [None]
  - POLLAKIURIA [None]
  - SENSATION OF PRESSURE [None]
